FAERS Safety Report 8028246-4 (Version None)
Quarter: 2012Q1

REPORT INFORMATION
  Report Type: 
  Country: None (occurrence: None)
  Receive Date: 20120104
  Receipt Date: 20111220
  Transmission Date: 20120608
  Serious: Yes (Other)
  Sender: FDA-Public Use
  Company Number: 2011SGN00337

PATIENT
  Age: 51 Year
  Sex: Male
  Weight: 88.6 kg

DRUGS (1)
  1. BRENTUXIMAB VEDOTIN (BRENTUXIMAB VEDOTIN) INJECTION [Suspect]
     Indication: PSEUDOLYMPHOMA
     Dosage: 1.8 MG/KG, Q21D, INTRAVENOUS
     Route: 042
     Dates: start: 20110421, end: 20111110

REACTIONS (7)
  - BLOOD ALKALINE PHOSPHATASE INCREASED [None]
  - BONE MARROW GRANULOMA [None]
  - PANCYTOPENIA [None]
  - PNEUMONIA [None]
  - HODGKIN'S DISEASE [None]
  - NEOPLASM PROGRESSION [None]
  - BLOOD BILIRUBIN INCREASED [None]
